FAERS Safety Report 4833172-5 (Version None)
Quarter: 2005Q4

REPORT INFORMATION
  Report Type: 
  Country: None (occurrence: None)
  Receive Date: 20051117
  Receipt Date: 20051107
  Transmission Date: 20060501
  Serious: Yes (Death, Other)
  Sender: FDA-Public Use
  Company Number: 2005135344

PATIENT
  Age: 64 Year
  Sex: Male

DRUGS (3)
  1. NEURONTIN [Suspect]
     Indication: PAIN
  2. DOXEPIN (CAPS) (DOXEPIN) [Suspect]
     Indication: ILL-DEFINED DISORDER
  3. CARISOPRODOL [Suspect]
     Indication: ILL-DEFINED DISORDER

REACTIONS (3)
  - COMPLETED SUICIDE [None]
  - DRUG INEFFECTIVE [None]
  - DRUG TOXICITY [None]
